FAERS Safety Report 20101576 (Version 1)
Quarter: 2021Q4

REPORT INFORMATION
  Report Type: Spontaneous
  Country: US (occurrence: US)
  Receive Date: 20211123
  Receipt Date: 20211123
  Transmission Date: 20220303
  Serious: No
  Sender: FDA-Public Use
  Company Number: US-AMGEN-USASP2021180251

PATIENT
  Sex: Female

DRUGS (5)
  1. LUMAKRAS [Suspect]
     Active Substance: SOTORASIB
     Indication: Lung neoplasm malignant
     Dosage: 4 DOSAGE FORM, QD
     Route: 065
  2. LUMAKRAS [Suspect]
     Active Substance: SOTORASIB
     Dosage: 2 DOSAGE FORM, QD
     Route: 065
  3. PHENERGAN [Concomitant]
     Active Substance: PROMETHAZINE HYDROCHLORIDE
     Indication: Product used for unknown indication
     Route: 065
  4. RITALIN [Concomitant]
     Active Substance: METHYLPHENIDATE HYDROCHLORIDE
     Indication: Nausea
     Route: 065
  5. SODIUM PHENYLBUTYRATE [Concomitant]
     Active Substance: SODIUM PHENYLBUTYRATE
     Route: 065

REACTIONS (9)
  - Illness [Unknown]
  - Somnolence [Unknown]
  - Liver function test abnormal [Unknown]
  - Weight decreased [Unknown]
  - Feeding disorder [Unknown]
  - Dysgeusia [Unknown]
  - Decreased appetite [Unknown]
  - Nausea [Recovering/Resolving]
  - Diarrhoea [Unknown]
